FAERS Safety Report 8574308-2 (Version None)
Quarter: 2012Q3

REPORT INFORMATION
  Report Type: 
  Country: None (occurrence: None)
  Receive Date: 20120806
  Receipt Date: 20120730
  Transmission Date: 20120928
  Serious: Yes (Death)
  Sender: FDA-Public Use
  Company Number: JP-CELGENEUS-087-50794-12080323

PATIENT
  Age: 72 Year
  Sex: Male

DRUGS (21)
  1. CIPROFLOXACIN HCL [Concomitant]
     Route: 065
     Dates: start: 20110824, end: 20111012
  2. DEXAMETHASONE SODIUM PHOSPHATE [Concomitant]
     Route: 065
     Dates: end: 20110930
  3. ALINAMIN-F [Concomitant]
     Route: 065
  4. CIFROQUINON [Concomitant]
     Route: 065
  5. DEXAMETHASONE SODIUM PHOSPHATE [Concomitant]
     Route: 065
     Dates: start: 20110711, end: 20110814
  6. NEOPHAGEN [Concomitant]
     Route: 065
     Dates: start: 20110720, end: 20110720
  7. NEOPHAGEN [Concomitant]
     Route: 065
     Dates: start: 20110727, end: 20110727
  8. NORVASC [Concomitant]
     Route: 065
  9. NORVASC [Concomitant]
     Route: 065
  10. FLUCONAZOLE [Concomitant]
     Route: 065
  11. AMLODIPINE [Concomitant]
     Route: 065
     Dates: start: 20110715
  12. KYTRIL [Concomitant]
     Route: 065
     Dates: end: 20110930
  13. VIDAZA [Suspect]
     Dosage: 75 MILLIGRAM/SQ. METER
     Route: 041
     Dates: start: 20110920, end: 20110926
  14. ARMODAFINIL [Concomitant]
     Route: 065
     Dates: start: 20110824, end: 20111026
  15. HEPARIN NA LOCK [Concomitant]
     Route: 065
     Dates: start: 20110711, end: 20110814
  16. ALMARL [Concomitant]
     Route: 065
  17. NEOPHAGEN [Concomitant]
     Route: 065
     Dates: start: 20110801, end: 20110801
  18. KYTRIL [Concomitant]
     Route: 065
     Dates: start: 20110711, end: 20110814
  19. VIDAZA [Suspect]
     Dosage: 75 MILLIGRAM/SQ. METER
     Route: 041
     Dates: start: 20110711, end: 20110717
  20. VIDAZA [Suspect]
     Dosage: 75 MILLIGRAM/SQ. METER
     Route: 041
     Dates: start: 20110808, end: 20110814
  21. MOHRUS TAPE L [Concomitant]
     Route: 065
     Dates: start: 20111026, end: 20111029

REACTIONS (1)
  - ACUTE MYELOID LEUKAEMIA [None]
